FAERS Safety Report 14538804 (Version 1)
Quarter: 2018Q1

REPORT INFORMATION
  Report Type: Spontaneous
  Country: IN (occurrence: IN)
  Receive Date: 20180216
  Receipt Date: 20180216
  Transmission Date: 20180509
  Serious: Yes (Death, Hospitalization, Other)
  Sender: FDA-Public Use
  Company Number: IN-VISTAPHARM, INC.-VER201802-000375

PATIENT
  Age: 8 Year
  Sex: Female

DRUGS (10)
  1. VALPROIC ACID. [Suspect]
     Active Substance: VALPROIC ACID
     Indication: DISEASE RECURRENCE
  2. OXCARBAZEPINE. [Suspect]
     Active Substance: OXCARBAZEPINE
     Indication: GENERALISED TONIC-CLONIC SEIZURE
  3. OXCARBAZEPINE. [Suspect]
     Active Substance: OXCARBAZEPINE
     Indication: DISEASE RECURRENCE
  4. PHENOBARBITONE [Suspect]
     Active Substance: PHENOBARBITAL
     Indication: GENERALISED TONIC-CLONIC SEIZURE
  5. LEVETIRACETAM. [Suspect]
     Active Substance: LEVETIRACETAM
     Indication: GENERALISED TONIC-CLONIC SEIZURE
  6. LEVETIRACETAM. [Suspect]
     Active Substance: LEVETIRACETAM
     Indication: DISEASE RECURRENCE
  7. PHENOBARBITONE [Suspect]
     Active Substance: PHENOBARBITAL
     Indication: DISEASE RECURRENCE
  8. CLOBAZAM [Suspect]
     Active Substance: CLOBAZAM
     Indication: DISEASE RECURRENCE
  9. VALPROIC ACID. [Suspect]
     Active Substance: VALPROIC ACID
     Indication: GENERALISED TONIC-CLONIC SEIZURE
  10. CLOBAZAM [Suspect]
     Active Substance: CLOBAZAM
     Indication: GENERALISED TONIC-CLONIC SEIZURE

REACTIONS (3)
  - Sepsis [Fatal]
  - Nosocomial infection [Fatal]
  - Drug reaction with eosinophilia and systemic symptoms [Unknown]
